FAERS Safety Report 4616537-6 (Version None)
Quarter: 2005Q2

REPORT INFORMATION
  Report Type: 
  Country: None (occurrence: None)
  Receive Date: 20050311
  Receipt Date: 20050207
  Transmission Date: 20051028
  Serious: No
  Sender: FDA-Public Use
  Company Number: 2005-00207

PATIENT
  Sex: Female

DRUGS (1)
  1. VELCADE [Suspect]

REACTIONS (4)
  - ACCIDENTAL EXPOSURE [None]
  - DERMATITIS ALLERGIC [None]
  - HYPERSENSITIVITY [None]
  - SKIN INFLAMMATION [None]
